FAERS Safety Report 8727464 (Version 2)
Quarter: 2012Q4

REPORT INFORMATION
  Report Type: 
  Country: DE (occurrence: JP)
  Receive Date: 20120816
  Receipt Date: 20120829
  Transmission Date: 20130627
  Serious: Yes (Other)
  Sender: FDA-Public Use
  Company Number: JP-FRI-1000037685

PATIENT
  Age: 85 Year
  Sex: Female

DRUGS (8)
  1. MEMANTINE [Suspect]
     Indication: DEMENTIA ALZHEIMER^S TYPE
     Dosage: 5 mg
     Route: 048
     Dates: start: 20120713, end: 20120719
  2. MEMANTINE [Suspect]
     Dosage: 10 mg
     Route: 048
     Dates: start: 20120720, end: 20120726
  3. MEMANTINE [Suspect]
     Indication: DEMENTIA ALZHEIMER^S TYPE
     Dosage: 15 mg
     Route: 048
     Dates: start: 20120727, end: 20120731
  4. AMLODIPINE [Concomitant]
     Indication: HYPERTENSION
     Dosage: 5 mg
     Route: 048
  5. BLOPRESS [Concomitant]
     Indication: HYPERTENSION
     Dosage: 8 mg
     Route: 048
  6. FLUITRAN [Concomitant]
     Indication: HYPERTENSION
     Dosage: 4 mg
     Route: 048
  7. SHAKUYAKUKANZOUTOU [Concomitant]
     Indication: MUSCLE SPASMS
     Dosage: 22.5 mg
     Route: 048
  8. EPADEL [Concomitant]
     Indication: HYPERLIPIDAEMIA
     Dosage: 1800
     Route: 048

REACTIONS (2)
  - Pyrexia [Recovered/Resolved]
  - Convulsion [Recovered/Resolved]
